FAERS Safety Report 16151635 (Version 2)
Quarter: 2019Q2

REPORT INFORMATION
  Report Type: Report from Study
  Country: US (occurrence: US)
  Receive Date: 20190403
  Receipt Date: 20190403
  Transmission Date: 20190711
  Serious: Yes (Death, Hospitalization)
  Sender: FDA-Public Use
  Company Number: US-HLSUS-2019-US-000293

PATIENT
  Age: 90 Year
  Sex: Male

DRUGS (1)
  1. CLOZARIL [Suspect]
     Active Substance: CLOZAPINE
     Dosage: 25 MG OD AT NIGHT
     Route: 048

REACTIONS (3)
  - Chest pain [Unknown]
  - Neutrophil count increased [Unknown]
  - Death [Fatal]

NARRATIVE: CASE EVENT DATE: 20190320
